FAERS Safety Report 24085096 (Version 1)
Quarter: 2024Q3

REPORT INFORMATION
  Report Type: Spontaneous
  Country: JP (occurrence: JP)
  Receive Date: 20240712
  Receipt Date: 20240712
  Transmission Date: 20241016
  Serious: No
  Sender: PIERRE FABRE MEDICAMENT
  Company Number: JP-PFM-2021-10780

PATIENT
  Age: 0 Year
  Sex: Female
  Weight: 4 kg

DRUGS (6)
  1. PROPRANOLOL HYDROCHLORIDE [Suspect]
     Active Substance: PROPRANOLOL HYDROCHLORIDE
     Indication: Infantile haemangioma
     Dosage: 0.72 UNK, UNK
     Route: 051
     Dates: start: 20210923, end: 20210924
  2. PROPRANOLOL HYDROCHLORIDE [Suspect]
     Active Substance: PROPRANOLOL HYDROCHLORIDE
     Dosage: 1.44 MG/KG, UNK
     Route: 048
     Dates: start: 20210925
  3. MIDAZOLAM [Suspect]
     Active Substance: MIDAZOLAM
     Indication: Endotracheal intubation
     Dosage: UNK
     Route: 041
     Dates: start: 20210922, end: 20211004
  4. FENTANYL [Suspect]
     Active Substance: FENTANYL\FENTANYL CITRATE
     Indication: Endotracheal intubation
     Dosage: UNK
     Route: 041
     Dates: start: 20210922, end: 20211005
  5. PHENOBARBITAL [Suspect]
     Active Substance: PHENOBARBITAL
     Indication: Sedation
     Dosage: 5 MG/KG, PER DAY
     Route: 048
     Dates: start: 20210923, end: 20211002
  6. ROCURONIUM BROMIDE [Concomitant]
     Active Substance: ROCURONIUM BROMIDE
     Indication: Endotracheal intubation
     Dosage: UNK
     Route: 042
     Dates: start: 20210922

REACTIONS (2)
  - Hypoglycaemia [Recovered/Resolved]
  - Hypotension [Recovered/Resolved]

NARRATIVE: CASE EVENT DATE: 20210924
